FAERS Safety Report 8550342-3 (Version None)
Quarter: 2012Q3

REPORT INFORMATION
  Report Type: 
  Country: None (occurrence: None)
  Receive Date: 20120730
  Receipt Date: 20120723
  Transmission Date: 20120928
  Serious: Yes (Hospitalization, Other)
  Sender: FDA-Public Use
  Company Number: IT-PFIZER INC-2012179344

PATIENT
  Age: 65 Year
  Sex: Female
  Weight: 106 kg

DRUGS (4)
  1. METHYLPREDNISOLONE [Suspect]
     Indication: COLITIS ULCERATIVE
     Dosage: 32 MG, 1X/DAY
     Route: 048
     Dates: start: 20090710
  2. MESALAMINE [Concomitant]
     Indication: COLITIS ULCERATIVE
     Dosage: 500 MG, 3X/DAY
     Route: 048
     Dates: start: 20070101
  3. OMEPRAZOLE [Concomitant]
     Indication: GASTRITIS PROPHYLAXIS
     Dosage: 20 MG, 1X/DAY
     Route: 048
     Dates: start: 20090520
  4. METFORMIN [Concomitant]
     Indication: DIABETES MELLITUS
     Dosage: 500 MG, 2X/DAY
     Route: 048
     Dates: start: 20080101

REACTIONS (2)
  - STAPHYLOCOCCAL INFECTION [None]
  - ACINETOBACTER INFECTION [None]
